FAERS Safety Report 19187467 (Version 1)
Quarter: 2021Q2

REPORT INFORMATION
  Report Type: Spontaneous
  Country: JP (occurrence: JP)
  Receive Date: 20210428
  Receipt Date: 20210428
  Transmission Date: 20210717
  Serious: Yes (Hospitalization, Other)
  Sender: FDA-Public Use
  Company Number: JP-TEVA-2021-JP-1904388

PATIENT
  Age: 55 Year
  Sex: Male

DRUGS (12)
  1. ACICLOVIR [Concomitant]
     Active Substance: ACYCLOVIR
     Indication: PROPHYLAXIS
     Route: 065
  2. PREDNISOLONE. [Suspect]
     Active Substance: PREDNISOLONE
     Indication: INTERSTITIAL LUNG DISEASE
     Dosage: (1 MG/KG)
     Route: 065
  3. VORICONAZOLE. [Interacting]
     Active Substance: VORICONAZOLE
     Indication: PROPHYLAXIS
     Route: 065
  4. TACROLIMUS. [Suspect]
     Active Substance: TACROLIMUS
     Indication: INTERSTITIAL LUNG DISEASE
     Route: 065
  5. CYCLOPHOSPHAMIDE. [Suspect]
     Active Substance: CYCLOPHOSPHAMIDE
     Indication: INTERSTITIAL LUNG DISEASE
     Dosage: 500MG (300MG/MM2), EVERY TWO WEEKS
     Route: 042
  6. SULFAMETHOXAZOLE/TRIMETHOPRIM [Concomitant]
     Active Substance: SULFAMETHOXAZOLE\TRIMETHOPRIM
     Indication: PROPHYLAXIS
     Dosage: HALF?STRENGTH TABLET, TWICE A WEEK
     Route: 065
  7. PENTAMIDINE [Concomitant]
     Active Substance: PENTAMIDINE
     Indication: PROPHYLAXIS
     Route: 050
  8. TACROLIMUS. [Suspect]
     Active Substance: TACROLIMUS
     Dosage: DOSE OF TACROLIMUS WAS ADJUSTED AIMING AT BLOOD TROUGH CONCENTRATIONS OF AROUND 10 NG/ ML
     Route: 065
  9. TOFACITINIB [Interacting]
     Active Substance: TOFACITINIB
     Dosage: DOSE INCREASED
     Route: 065
  10. METHYLPREDNISOLONE. [Concomitant]
     Active Substance: METHYLPREDNISOLONE
     Indication: INTERSTITIAL LUNG DISEASE
     Dosage: 1000 MG/DAY FOR 3 DAYS
     Route: 065
  11. TOFACITINIB [Interacting]
     Active Substance: TOFACITINIB
     Indication: INTERSTITIAL LUNG DISEASE
     Dosage: 5MG TWICE DAILY
     Route: 065
  12. IMMUNE GLOBULIN (IVIG) [Suspect]
     Active Substance: HUMAN IMMUNOGLOBULIN G
     Indication: INTERSTITIAL LUNG DISEASE
     Dosage: 0.4 G/KG/DAY FOR 5 DAYS
     Route: 042

REACTIONS (7)
  - Furuncle [Recovering/Resolving]
  - Drug level increased [Recovered/Resolved]
  - Skin infection [Recovering/Resolving]
  - Off label use [Unknown]
  - Cytomegalovirus infection reactivation [Recovering/Resolving]
  - Drug ineffective [Unknown]
  - Drug interaction [Unknown]
